FAERS Safety Report 14421371 (Version 2)
Quarter: 2018Q1

REPORT INFORMATION
  Report Type: Spontaneous
  Country: US (occurrence: US)
  Receive Date: 20180122
  Receipt Date: 20180123
  Transmission Date: 20180509
  Serious: Yes (Other)
  Sender: FDA-Public Use
  Company Number: US-CELGENEUS-USA-20180103641

PATIENT
  Age: 52 Year
  Sex: Female
  Weight: 111 kg

DRUGS (2)
  1. OTEZLA [Suspect]
     Active Substance: APREMILAST
     Indication: PSORIASIS
     Dosage: 60 MILLIGRAM
     Route: 048
  2. OTEZLA [Suspect]
     Active Substance: APREMILAST
     Indication: PSORIATIC ARTHROPATHY

REACTIONS (5)
  - Sepsis [Unknown]
  - Weight decreased [Unknown]
  - Drug dose omission [Unknown]
  - Pneumonia [Unknown]
  - Rebound psoriasis [Unknown]

NARRATIVE: CASE EVENT DATE: 20180106
